FAERS Safety Report 21952955 (Version 1)
Quarter: 2023Q1

REPORT INFORMATION
  Report Type: Spontaneous
  Country: US (occurrence: US)
  Receive Date: 20230204
  Receipt Date: 20230204
  Transmission Date: 20230417
  Serious: Yes (Death, Hospitalization, Other)
  Sender: FDA-Public Use
  Company Number: US-SPECGX-T202300044

PATIENT
  Age: 37 Year
  Sex: Male

DRUGS (12)
  1. METHADONE [Suspect]
     Active Substance: METHADONE HYDROCHLORIDE
     Indication: Product used for unknown indication
     Dosage: UNK
     Route: 065
  2. HYDROMORPHONE [Suspect]
     Active Substance: HYDROMORPHONE
     Indication: Sedation
     Dosage: UNK
     Route: 051
  3. HERBALS\RICINUS COMMUNIS SEED [Suspect]
     Active Substance: HERBALS\RICINUS COMMUNIS SEED
     Indication: Product used for unknown indication
     Dosage: UNK
     Route: 062
  4. HERBALS\RICINUS COMMUNIS SEED [Suspect]
     Active Substance: HERBALS\RICINUS COMMUNIS SEED
     Dosage: UNK
     Route: 051
  5. ACETONE [Suspect]
     Active Substance: ACETONE
     Indication: Product used for unknown indication
     Dosage: UNK
     Route: 062
  6. ACETONE [Suspect]
     Active Substance: ACETONE
     Dosage: UNK
     Route: 051
  7. BUPROPION [Suspect]
     Active Substance: BUPROPION
     Indication: Product used for unknown indication
     Dosage: UNK
     Route: 065
  8. HYDROXYZINE [Suspect]
     Active Substance: HYDROXYZINE HYDROCHLORIDE
     Indication: Product used for unknown indication
     Dosage: UNK
     Route: 065
  9. MIRTAZAPINE [Suspect]
     Active Substance: MIRTAZAPINE
     Indication: Product used for unknown indication
     Dosage: UNK
     Route: 065
  10. LAMOTRIGINE [Suspect]
     Active Substance: LAMOTRIGINE
     Indication: Product used for unknown indication
     Dosage: UNK
     Route: 065
  11. ALBUTEROL SULFATE [Suspect]
     Active Substance: ALBUTEROL SULFATE
     Indication: Product used for unknown indication
     Dosage: UNK
     Route: 065
  12. MIDAZOLAM [Suspect]
     Active Substance: MIDAZOLAM
     Indication: Product used for unknown indication
     Dosage: UNK
     Route: 065

REACTIONS (14)
  - Multiple organ dysfunction syndrome [Fatal]
  - Completed suicide [Fatal]
  - Drug abuse [Fatal]
  - Sepsis [Unknown]
  - Flank pain [Unknown]
  - Chest pain [Unknown]
  - Chest discomfort [Unknown]
  - Tremor [Unknown]
  - Muscle twitching [Unknown]
  - Nausea [Unknown]
  - Agitation [Unknown]
  - Injection site pain [Unknown]
  - Injection site bruising [Unknown]
  - Injection site erythema [Unknown]

NARRATIVE: CASE EVENT DATE: 20210101
